FAERS Safety Report 13585748 (Version 2)
Quarter: 2017Q3

REPORT INFORMATION
  Report Type: Spontaneous
  Country: DE (occurrence: DE)
  Receive Date: 20170526
  Receipt Date: 20170727
  Transmission Date: 20171127
  Serious: Yes (Hospitalization, Other)
  Sender: FDA-Public Use
  Company Number: DE-009507513-1705DEU011990

PATIENT
  Age: 59 Year
  Sex: Male
  Weight: 90 kg

DRUGS (13)
  1. PROCORALAN [Concomitant]
     Active Substance: IVABRADINE
     Dosage: 2 X 1 TABLET
  2. SIMVASTATIN RATIOPHARM [Concomitant]
     Active Substance: SIMVASTATIN
     Dosage: 2 X 0.5 TABLET
  3. ALLOPURINOL-RATIOPHARM [Concomitant]
     Active Substance: ALLOPURINOL
     Dosage: 1 X 1 TABLET
  4. FELODIPINE. [Concomitant]
     Active Substance: FELODIPINE
     Dosage: 1 X 1 TABLET
  5. ASPIRIN. [Concomitant]
     Active Substance: ASPIRIN
     Dosage: 1 X 1 TABLET
  6. JANUVIA [Suspect]
     Active Substance: SITAGLIPTIN PHOSPHATE
     Route: 048
  7. BISOPROLOL [Concomitant]
     Active Substance: BISOPROLOL
     Dosage: 2 X 0.5
  8. MOXONIDINE [Concomitant]
     Active Substance: MOXONIDINE
     Dosage: 1 X 1 TABLET
  9. TORSEMIDE. [Concomitant]
     Active Substance: TORSEMIDE
     Dosage: 2 X 1 TABLET
  10. EZETROL [Suspect]
     Active Substance: EZETIMIBE
     Dosage: 1 X 1 TABLET
     Route: 048
  11. CLOPIDOGREL [Concomitant]
     Active Substance: CLOPIDOGREL BISULFATE
  12. FOLIC ACID. [Concomitant]
     Active Substance: FOLIC ACID
  13. RAMIPRIL. [Concomitant]
     Active Substance: RAMIPRIL
     Dosage: 0.5 MG, BID

REACTIONS (17)
  - Myocardial infarction [Unknown]
  - Right ventricular enlargement [Unknown]
  - Blood glucose decreased [Recovering/Resolving]
  - Acute kidney injury [Recovering/Resolving]
  - Dyspnoea at rest [Unknown]
  - Chronic obstructive pulmonary disease [Unknown]
  - Sleep apnoea syndrome [Unknown]
  - Haemoglobin decreased [Recovering/Resolving]
  - Contusion [Unknown]
  - Dyspnoea [Unknown]
  - Haemorrhagic erosive gastritis [Unknown]
  - Radius fracture [Unknown]
  - Pulmonary congestion [Unknown]
  - Metabolic acidosis [Unknown]
  - Left ventricular failure [Unknown]
  - Hypotension [Unknown]
  - Fall [Unknown]

NARRATIVE: CASE EVENT DATE: 201705
